FAERS Safety Report 8513630-2 (Version None)
Quarter: 2012Q3

REPORT INFORMATION
  Report Type: 
  Country: None (occurrence: None)
  Receive Date: 20120717
  Receipt Date: 20120704
  Transmission Date: 20120928
  Serious: No
  Sender: FDA-Public Use
  Company Number: US-PFIZER INC-2012166281

PATIENT
  Sex: Female
  Weight: 77.11 kg

DRUGS (13)
  1. PREDNISONE [Concomitant]
     Indication: INFLAMMATION
     Dosage: 60 MG, 3 DAYS
     Dates: start: 20120428
  2. RIFAMPIN [Concomitant]
     Indication: MENINGITIS
     Dosage: 600 MG, UNK
     Dates: start: 20120417, end: 20120420
  3. TYLENOL [Suspect]
     Indication: PAIN
     Dosage: 3 MG, UNK
  4. PREDNISONE [Concomitant]
     Dosage: 40 MG, FOR 3 DAYS
  5. ULTRAM [Suspect]
     Indication: PAIN
     Dosage: 100 MG, ONCE A DAY
  6. ALEVE [Suspect]
     Indication: PAIN
     Dosage: 440 MG ONCE EVERY 6 HOURS
  7. AMBIEN [Concomitant]
     Indication: SLEEP DISORDER THERAPY
     Dosage: UNK
  8. PREDNISONE [Concomitant]
     Dosage: 20 MG, 3 DAYS
     Dates: start: 20120507
  9. PROZAC [Concomitant]
     Indication: DEPRESSION
     Dosage: UNK
  10. PREDNISONE [Concomitant]
     Indication: PAIN
     Dosage: 10 MG IN AM AND 2.5 MG AT NIGHT
     Dates: start: 20120521
  11. IBUPROFEN [Suspect]
     Indication: PAIN
     Dosage: 2400 MG, PER DAY
     Route: 065
  12. TYLENOL [Suspect]
     Dosage: 3 G, PER DAY
  13. ALEVE [Suspect]
     Dosage: 440 MG, 1X/DAY

REACTIONS (2)
  - DYSPEPSIA [None]
  - NAUSEA [None]
